FAERS Safety Report 4748646-5 (Version None)
Quarter: 2005Q3

REPORT INFORMATION
  Report Type: 
  Country: None (occurrence: None)
  Receive Date: 20050817
  Receipt Date: 20050810
  Transmission Date: 20060218
  Serious: Yes (Hospitalization, Other)
  Sender: FDA-Public Use
  Company Number: 2005113734

PATIENT
  Age: 91 Year
  Sex: Female

DRUGS (3)
  1. ZOLOFT [Suspect]
     Indication: DEPRESSION
     Dates: end: 20050809
  2. ARICEPT [Suspect]
     Indication: AMNESIA
     Dosage: 5 MG
  3. MEMANTINE HCL [Concomitant]

REACTIONS (11)
  - AMNESIA [None]
  - CARDIAC FAILURE CONGESTIVE [None]
  - DEPRESSION [None]
  - DISEASE RECURRENCE [None]
  - DYSSTASIA [None]
  - FAECAL INCONTINENCE [None]
  - HALLUCINATION, AUDITORY [None]
  - INTERNATIONAL NORMALISED RATIO INCREASED [None]
  - THROMBOSIS [None]
  - URINARY INCONTINENCE [None]
  - URINARY TRACT INFECTION [None]
